FAERS Safety Report 15894024 (Version 1)
Quarter: 2019Q1

REPORT INFORMATION
  Report Type: Spontaneous
  Country: NL (occurrence: NL)
  Receive Date: 20190131
  Receipt Date: 20190131
  Transmission Date: 20190417
  Serious: Yes (Other)
  Sender: FDA-Public Use
  Company Number: NL-ACCORD-104192

PATIENT
  Age: 68 Year
  Sex: Male

DRUGS (1)
  1. INJEXATE [Suspect]
     Active Substance: METHOTREXATE SODIUM
     Indication: RHEUMATOID ARTHRITIS
     Dosage: 15MG ONCE A WEEK
     Route: 051
     Dates: start: 20181011, end: 20190115

REACTIONS (2)
  - Injection site pain [Unknown]
  - Needle issue [Unknown]
